FAERS Safety Report 5266902-1 (Version None)
Quarter: 2007Q1

REPORT INFORMATION
  Report Type: 
  Country: None (occurrence: None)
  Receive Date: 20070316
  Receipt Date: 20070305
  Transmission Date: 20070707
  Serious: Yes (Disabling)
  Sender: FDA-Public Use
  Company Number: FR-NOVOPROD-259868

PATIENT
  Age: 54 Year
  Sex: Female
  Weight: 58 kg

DRUGS (8)
  1. ACTIVELLE [Suspect]
     Indication: HORMONE REPLACEMENT THERAPY
     Route: 048
     Dates: start: 20010801, end: 20070101
  2. IMOVANE [Concomitant]
     Indication: ANXIETY
  3. NARAMIG [Concomitant]
     Indication: MIGRAINE
  4. LEXOMIL [Concomitant]
     Indication: MIGRAINE
  5. PROZAC [Concomitant]
     Indication: DEPRESSION
  6. PAROXETINE HCL [Concomitant]
     Indication: DEPRESSION
  7. TAHOR [Concomitant]
     Indication: HYPERCHOLESTEROLAEMIA
  8. OMEPRAZOLE [Concomitant]
     Indication: BURN OESOPHAGEAL

REACTIONS (1)
  - SPEECH DISORDER [None]
